FAERS Safety Report 18917986 (Version 1)
Quarter: 2021Q1

REPORT INFORMATION
  Report Type: Report from Study
  Country: GB (occurrence: GB)
  Receive Date: 20210220
  Receipt Date: 20210220
  Transmission Date: 20210420
  Serious: Yes (Other)
  Sender: FDA-Public Use
  Company Number: GB-AUROBINDO-AUR-APL-2021-006373

PATIENT
  Age: 73 Year
  Sex: Female

DRUGS (15)
  1. ABACAVIR. [Suspect]
     Active Substance: ABACAVIR
     Dosage: UNK
     Route: 065
     Dates: start: 2013
  2. ABACAVIR. [Suspect]
     Active Substance: ABACAVIR
     Indication: HIV INFECTION
     Dosage: UNK
     Route: 065
     Dates: start: 2013, end: 2015
  3. EFAVIRENZ. [Suspect]
     Active Substance: EFAVIRENZ
     Indication: HIV INFECTION
     Dosage: UNK
     Route: 065
     Dates: start: 2003, end: 2007
  4. EFAVIRENZ. [Suspect]
     Active Substance: EFAVIRENZ
     Dosage: UNK
     Route: 065
     Dates: start: 2013, end: 2015
  5. LAMIVUDINE. [Suspect]
     Active Substance: LAMIVUDINE
     Dosage: UNK
     Route: 065
     Dates: start: 2013, end: 2015
  6. LAMIVUDINE. [Suspect]
     Active Substance: LAMIVUDINE
     Dosage: UNK
     Route: 065
     Dates: start: 2013
  7. EMTRICITABINE [Suspect]
     Active Substance: EMTRICITABINE
     Indication: HIV INFECTION
     Dosage: UNK
     Route: 065
     Dates: start: 2006, end: 2008
  8. TENOFOVIR [Suspect]
     Active Substance: TENOFOVIR
     Indication: HIV INFECTION
     Dosage: UNK
     Route: 065
     Dates: start: 2006, end: 2008
  9. DOLUTEGRAVIR [Suspect]
     Active Substance: DOLUTEGRAVIR
     Indication: HIV INFECTION
     Dosage: UNK
     Route: 065
     Dates: start: 2013
  10. EMTRICITABINE [Suspect]
     Active Substance: EMTRICITABINE
     Dosage: UNK
     Route: 065
     Dates: start: 2008, end: 2013
  11. EFAVIRENZ. [Suspect]
     Active Substance: EFAVIRENZ
     Dosage: UNK
     Route: 065
     Dates: start: 2006, end: 2008
  12. EFAVIRENZ. [Suspect]
     Active Substance: EFAVIRENZ
     Dosage: UNK
     Route: 065
     Dates: start: 2008, end: 2013
  13. DIDANOSINE. [Suspect]
     Active Substance: DIDANOSINE
     Indication: HIV INFECTION
     Dosage: UNK
     Route: 065
     Dates: start: 2003, end: 2007
  14. TENOFOVIR [Suspect]
     Active Substance: TENOFOVIR
     Dosage: UNK
     Route: 065
     Dates: start: 2008, end: 2013
  15. LAMIVUDINE. [Suspect]
     Active Substance: LAMIVUDINE
     Indication: HIV INFECTION
     Dosage: UNK
     Route: 065
     Dates: start: 2003, end: 2007

REACTIONS (2)
  - Disease progression [Unknown]
  - Retinal toxicity [Unknown]
